FAERS Safety Report 7835277-3 (Version None)
Quarter: 2011Q4

REPORT INFORMATION
  Report Type: 
  Country: None (occurrence: None)
  Receive Date: 20111024
  Receipt Date: 20111014
  Transmission Date: 20120403
  Serious: Yes (Hospitalization, Other)
  Sender: FDA-Public Use
  Company Number: US-ABBOTT-11P-163-0867121-00

PATIENT
  Sex: Female
  Weight: 61.29 kg

DRUGS (6)
  1. BUSPAR [Concomitant]
     Indication: HEAD INJURY
  2. HUMIRA [Suspect]
     Indication: COLITIS ULCERATIVE
     Dosage: FOUR INJECTIONS ON DAY 1.
     Dates: start: 20110301, end: 20110301
  3. PREDNISONE [Concomitant]
     Indication: COLITIS ULCERATIVE
  4. HUMIRA [Suspect]
     Dosage: FOUR INJECTIONS ON DAY 1.
     Dates: start: 20111014, end: 20111014
  5. NAMENDA [Concomitant]
     Indication: HEAD INJURY
  6. MERCAPTOPURINE [Concomitant]
     Indication: COLITIS ULCERATIVE

REACTIONS (12)
  - COLITIS [None]
  - MALAISE [None]
  - CYTOMEGALOVIRUS INFECTION [None]
  - OROPHARYNGEAL PAIN [None]
  - PYREXIA [None]
  - ASTHENIA [None]
  - CHILLS [None]
  - FOOD INTOLERANCE [None]
  - FEELING ABNORMAL [None]
  - PHARYNGITIS STREPTOCOCCAL [None]
  - ORAL FUNGAL INFECTION [None]
  - ANAEMIA [None]
